FAERS Safety Report 8049202 (Version 6)
Quarter: 2019Q1

REPORT INFORMATION
  Report Type: Spontaneous
  Country: GB (occurrence: GB)
  Receive Date: 20110722
  Receipt Date: 20190320
  Transmission Date: 20190418
  Serious: Yes (Death, Hospitalization, Other)
  Sender: FDA-Public Use
  Company Number: GB-PFIZER INC-2009237549

PATIENT
  Age: 19 Year
  Sex: Female
  Weight: 50 kg

DRUGS (5)
  1. OMEPRAZOLE. [Interacting]
     Active Substance: OMEPRAZOLE
     Dosage: 20 MG, 4X/DAY
  2. SILDENAFIL CITRATE. [Suspect]
     Active Substance: SILDENAFIL CITRATE
     Indication: PULMONARY HYPERTENSION
     Dosage: 50 MG, 3X/DAY
     Dates: start: 20080926
  3. AMOXYCILLIN [Interacting]
     Active Substance: AMOXICILLIN
     Indication: EAR INFECTION
     Dosage: UNK
     Dates: start: 20090624
  4. DOMPERIDONE [Interacting]
     Active Substance: DOMPERIDONE
     Indication: EAR INFECTION
  5. THELIN [Interacting]
     Active Substance: SITAXENTAN SODIUM
     Indication: PULMONARY ARTERIAL HYPERTENSION
     Dosage: 100 MG, 1X/DAY
     Route: 048
     Dates: start: 20090329, end: 20090626

REACTIONS (17)
  - Pupil fixed [Unknown]
  - Hepatitis acute [Unknown]
  - Liver function test abnormal [Unknown]
  - Brain herniation [Unknown]
  - Jaundice [Unknown]
  - Encephalopathy [Unknown]
  - Nausea [Unknown]
  - Coagulopathy [Unknown]
  - Brain oedema [Fatal]
  - Chest pain [Unknown]
  - Circulatory collapse [Unknown]
  - Acute hepatic failure [Fatal]
  - Drug interaction [Fatal]
  - Ear pain [Unknown]
  - Vomiting [Unknown]
  - Lymphadenopathy [Unknown]
  - Pruritus [Unknown]

NARRATIVE: CASE EVENT DATE: 200906
